FAERS Safety Report 5710790-3 (Version None)
Quarter: 2008Q2

REPORT INFORMATION
  Report Type: 
  Country: None (occurrence: None)
  Receive Date: 20080417
  Receipt Date: 20080417
  Transmission Date: 20081010
  Serious: Yes (Disabling)
  Sender: FDA-Public Use
  Company Number: None

PATIENT
  Sex: Female
  Weight: 83.4619 kg

DRUGS (8)
  1. ARIMIDEX [Suspect]
     Indication: BREAST CANCER
     Dosage: 1 MG DAILY PO (NOT STOPPED PER HER ONCOLOGIST)
     Route: 048
     Dates: start: 20060101
  2. LEVOXYL [Concomitant]
  3. ALBUTEROL [Concomitant]
  4. NASAREL [Concomitant]
  5. CLARITIN [Concomitant]
  6. EFFEXOR [Concomitant]
  7. PRILOSEC [Concomitant]
  8. ALDACTONE [Concomitant]

REACTIONS (1)
  - TOOTH RESORPTION [None]
